FAERS Safety Report 16785059 (Version 1)
Quarter: 2019Q3

REPORT INFORMATION
  Report Type: Spontaneous
  Country: US (occurrence: US)
  Receive Date: 20190717
  Receipt Date: 20190717
  Transmission Date: 20191005
  Serious: No
  Sender: FDA-Public Use
  Company Number: None

PATIENT
  Age: 83 Year
  Sex: Female
  Weight: 69.4 kg

DRUGS (12)
  1. TELMISARTAN HCTZ [Concomitant]
     Active Substance: HYDROCHLOROTHIAZIDE\TELMISARTAN
  2. FELODIPINE. [Concomitant]
     Active Substance: FELODIPINE
  3. GLUCOSAMINE CHONDROITIN [Concomitant]
     Active Substance: CHONDROITIN SULFATE (BOVINE)\GLUCOSAMINE HYDROCHLORIDE
  4. METOPROLOL. [Concomitant]
     Active Substance: METOPROLOL
  5. IRON [Concomitant]
     Active Substance: IRON
  6. LOSARTAN-HCTZ [Suspect]
     Active Substance: HYDROCHLOROTHIAZIDE\LOSARTAN
     Indication: HYPERTENSION
     Dosage: ?          QUANTITY:100-25MG;?
     Route: 048
  7. LUTEIN [Concomitant]
     Active Substance: LUTEIN
  8. WOMEN^S 50+ ADV [Concomitant]
  9. GABAPENTIN. [Concomitant]
     Active Substance: GABAPENTIN
  10. VITAMIN B12 [Concomitant]
     Active Substance: CYANOCOBALAMIN
  11. FOLATE [Concomitant]
     Active Substance: FOLATE SODIUM
  12. ELIQUIS [Concomitant]
     Active Substance: APIXABAN

REACTIONS (1)
  - Chest pain [None]
